FAERS Safety Report 7240588-9 (Version None)
Quarter: 2011Q1

REPORT INFORMATION
  Report Type: 
  Country: None (occurrence: None)
  Receive Date: 20110124
  Receipt Date: 20110118
  Transmission Date: 20110831
  Serious: Yes (Hospitalization)
  Sender: FDA-Public Use
  Company Number: FR-TYCO HEALTHCARE/MALLINCKRODT-T201100074

PATIENT
  Sex: Male
  Weight: 98 kg

DRUGS (9)
  1. TECHNETIUM TC99M SESTAMIBI [Suspect]
     Indication: CARDIAC STRESS TEST
     Dosage: UNK, SINGLE
     Route: 042
     Dates: start: 20110110, end: 20110110
  2. INSULIN [Concomitant]
     Dosage: UNK
  3. EUPRESSYL                          /00631801/ [Concomitant]
     Dosage: UNK
  4. ULTRA-TECHNEKOW FM [Suspect]
     Indication: CARDIAC STRESS TEST
     Dosage: 150 MBQ, SINGLE
     Route: 042
     Dates: start: 20110110, end: 20110110
  5. TRIATEC                            /00885601/ [Concomitant]
     Dosage: UNK
  6. METFORMIN HCL [Concomitant]
     Dosage: UNK
  7. LODOZ                              /01166101/ [Concomitant]
     Dosage: UNK
  8. KARDEGIC                           /00002703/ [Concomitant]
     Dosage: UNK
  9. LERCAN [Concomitant]
     Dosage: UNK

REACTIONS (1)
  - TONGUE OEDEMA [None]
